FAERS Safety Report 21549808 (Version 2)
Quarter: 2022Q4

REPORT INFORMATION
  Report Type: Report from Study
  Country: CA (occurrence: CA)
  Receive Date: 20221103
  Receipt Date: 20221213
  Transmission Date: 20230112
  Serious: Yes (Death, Other)
  Sender: FDA-Public Use
  Company Number: CA-ABBVIE-4186929

PATIENT
  Sex: Male

DRUGS (3)
  1. VENCLEXTA [Suspect]
     Active Substance: VENETOCLAX
     Indication: Acute myeloid leukaemia
     Route: 048
     Dates: start: 20220621, end: 20220703
  2. VENCLEXTA [Suspect]
     Active Substance: VENETOCLAX
     Indication: Acute myeloid leukaemia
     Route: 048
  3. Low-dose cytarabine [Concomitant]
     Indication: Product used for unknown indication

REACTIONS (5)
  - Pneumonia [Fatal]
  - Death [Fatal]
  - Infection [Unknown]
  - Venoocclusive disease [Unknown]
  - Allogenic stem cell transplantation [Unknown]

NARRATIVE: CASE EVENT DATE: 20220101
